FAERS Safety Report 4827225-5 (Version None)
Quarter: 2005Q4

REPORT INFORMATION
  Report Type: 
  Country: None (occurrence: None)
  Receive Date: 20051014
  Receipt Date: 20050617
  Transmission Date: 20060501
  Serious: No
  Sender: FDA-Public Use
  Company Number: 2005SP001468

PATIENT
  Age: 74 Year
  Sex: Female
  Weight: 82.1011 kg

DRUGS (6)
  1. LUNESTA [Suspect]
     Indication: INSOMNIA
     Dosage: 3 MG; HS; ORAL
     Route: 048
     Dates: start: 20050615, end: 20050601
  2. TYLENOL (CAPLET) [Concomitant]
  3. ZIAC [Concomitant]
  4. ZOLOFT [Concomitant]
  5. METFORMIN [Concomitant]
  6. VALSARTAN [Concomitant]

REACTIONS (2)
  - DRUG INEFFECTIVE [None]
  - INITIAL INSOMNIA [None]
